FAERS Safety Report 5490677-4 (Version None)
Quarter: 2007Q4

REPORT INFORMATION
  Report Type: 
  Country: None (occurrence: None)
  Receive Date: 20071019
  Receipt Date: 20071012
  Transmission Date: 20080405
  Serious: Yes (Other)
  Sender: FDA-Public Use
  Company Number: CA-ASTRAZENECA-2007UW23933

PATIENT
  Age: 77 Year
  Sex: Female

DRUGS (5)
  1. ATACAND [Suspect]
  2. ACEBUTOLOL HYDROCHLORIDE [Concomitant]
     Route: 048
  3. ASPIRIN [Concomitant]
  4. DILANTIN [Concomitant]
     Route: 048
  5. LIPITOR [Concomitant]
     Route: 048

REACTIONS (5)
  - GAIT DISTURBANCE [None]
  - HYPOTENSION [None]
  - MUSCLE SPASMS [None]
  - MUSCULOSKELETAL STIFFNESS [None]
  - PAIN [None]
